FAERS Safety Report 15676816 (Version 2)
Quarter: 2019Q3

REPORT INFORMATION
  Report Type: Spontaneous
  Country: US (occurrence: US)
  Receive Date: 20181130
  Receipt Date: 20190702
  Transmission Date: 20191004
  Serious: No
  Sender: FDA-Public Use
  Company Number: US-PFIZER INC-2018485035

PATIENT
  Age: 15 Year
  Sex: Male

DRUGS (2)
  1. GENOTROPIN MQ [Suspect]
     Active Substance: SOMATROPIN
     Dosage: 0.6 MG, DAILY (GENOTROPIN 2MG AND 0.6MG MINIQUICK, 2.6MG DAILY DOSE 7 DAYS A WEEK)
  2. GENOTROPIN MQ [Suspect]
     Active Substance: SOMATROPIN
     Dosage: 2 MG, DAILY (GENOTROPIN 2MG AND 0.6MG MINIQUICK, 2.6MG DAILY DOSE 7 DAYS A WEEK)

REACTIONS (2)
  - Blood 1,25-dihydroxycholecalciferol decreased [Unknown]
  - Product dose omission [Unknown]
